FAERS Safety Report 23183618 (Version 4)
Quarter: 2024Q2

REPORT INFORMATION
  Report Type: Spontaneous
  Country: US (occurrence: US)
  Receive Date: 20231114
  Receipt Date: 20240403
  Transmission Date: 20240716
  Serious: Yes (Other)
  Sender: FDA-Public Use
  Company Number: US-PFIZER INC-202300313083

PATIENT
  Age: 77 Year
  Sex: Female
  Weight: 76.1 kg

DRUGS (3)
  1. IBRANCE [Suspect]
     Active Substance: PALBOCICLIB
     Indication: Hormone receptor positive breast cancer
     Dosage: 125 MG, CYCLIC (DAY 1 - DAY 21)
     Dates: start: 20230829
  2. IBRANCE [Suspect]
     Active Substance: PALBOCICLIB
     Indication: Breast cancer stage III
     Dosage: 100 MG, CYCLIC (TAKE DAILY ON DAYS 1 THROUGH 21 FOLLOWED BY 7 DAYS OFF EVERY 28 DAYS)
     Route: 048
  3. ANASTROZOLE [Concomitant]
     Active Substance: ANASTROZOLE
     Dosage: UNK
     Dates: start: 202308

REACTIONS (9)
  - Neutropenia [Recovered/Resolved]
  - Pulmonary embolism [Unknown]
  - Blood immunoglobulin G increased [Unknown]
  - Eosinophil count decreased [Unknown]
  - Lymphocyte count increased [Unknown]
  - Monocyte count increased [Unknown]
  - Red blood cell count decreased [Unknown]
  - Blood test abnormal [Unknown]
  - Adrenal mass [Unknown]

NARRATIVE: CASE EVENT DATE: 20230101
